FAERS Safety Report 9874941 (Version 1)
Quarter: 2014Q1

REPORT INFORMATION
  Report Type: Spontaneous
  Country: US (occurrence: None)
  Receive Date: 20140205
  Receipt Date: 20140205
  Transmission Date: 20141002
  Serious: Yes (Hospitalization, Disabling)
  Sender: FDA-Public Use
  Company Number: None

PATIENT
  Age: 58 Year
  Sex: Female
  Weight: 56.25 kg

DRUGS (1)
  1. FOSAMAX [Suspect]
     Indication: OSTEOPENIA
     Route: 048

REACTIONS (6)
  - Pain in extremity [None]
  - Arthralgia [None]
  - Gait disturbance [None]
  - Femur fracture [None]
  - Fracture displacement [None]
  - Bone disorder [None]
